FAERS Safety Report 9419313 (Version 1)
Quarter: 2013Q3

REPORT INFORMATION
  Report Type: Spontaneous
  Country: US (occurrence: US)
  Receive Date: 20130725
  Receipt Date: 20130725
  Transmission Date: 20140515
  Serious: No
  Sender: FDA-Public Use
  Company Number: US-GLAXOSMITHKLINE-A1010960A

PATIENT
  Age: 34 Year
  Sex: Male

DRUGS (6)
  1. LAMICTAL XR [Suspect]
     Indication: BIPOLAR DISORDER
     Dosage: 300MG TWICE PER DAY
     Route: 048
  2. UNKNOWN MEDICATION [Concomitant]
  3. WELLBUTRIN [Concomitant]
  4. CYMBALTA [Concomitant]
  5. RITALIN [Concomitant]
  6. SEROQUEL [Concomitant]

REACTIONS (4)
  - Drug screen positive [Not Recovered/Not Resolved]
  - Polydipsia [Unknown]
  - Drug administration error [Unknown]
  - Drug level decreased [Unknown]
